FAERS Safety Report 4902135-3 (Version None)
Quarter: 2006Q1

REPORT INFORMATION
  Report Type: 
  Country: None (occurrence: None)
  Receive Date: 20060206
  Receipt Date: 20060124
  Transmission Date: 20060701
  Serious: Yes (Hospitalization)
  Sender: FDA-Public Use
  Company Number: JP-JNJFOC-20051200953

PATIENT
  Sex: Male
  Weight: 80 kg

DRUGS (22)
  1. REMICADE [Suspect]
     Dosage: 12TH INFUSION
     Route: 042
  2. REMICADE [Suspect]
     Dosage: 9TH INFUSION
     Route: 042
  3. REMICADE [Suspect]
     Dosage: 11TH INFUSION ON UNPSPECIFIED DATE
     Route: 042
  4. REMICADE [Suspect]
     Dosage: 10TH INFUSION ON UNSPECIFIED DATE
     Route: 042
  5. REMICADE [Suspect]
     Dosage: 9TH INFUSION ON UNSPECIFIED DATE
     Route: 042
  6. REMICADE [Suspect]
     Dosage: 8TH INFUSION ON UNSPECIFIED DATE
     Route: 042
  7. REMICADE [Suspect]
     Dosage: 7TH INFUSION ON UNSPECIFIED DATE
     Route: 042
  8. REMICADE [Suspect]
     Dosage: 6TH INFUSION ON UNSPECIFIED DATE
     Route: 042
  9. REMICADE [Suspect]
     Route: 042
  10. REMICADE [Suspect]
     Route: 042
  11. REMICADE [Suspect]
     Route: 042
  12. REMICADE [Suspect]
     Route: 042
  13. REMICADE [Suspect]
     Indication: RHEUMATOID ARTHRITIS
     Dosage: FIRST INFUSION
     Route: 042
  14. METHOTREXATE [Concomitant]
     Route: 048
  15. METHOTREXATE [Concomitant]
     Indication: RHEUMATOID ARTHRITIS
     Route: 048
  16. PREDONINE [Concomitant]
     Indication: RHEUMATOID ARTHRITIS
     Route: 048
  17. RIMATIL [Concomitant]
     Indication: RHEUMATOID ARTHRITIS
     Route: 048
  18. VOLTAREN [Concomitant]
     Indication: RHEUMATOID ARTHRITIS
     Dosage: ROUTE OF ADMINISTRATION = OD
  19. LOXONIN [Concomitant]
     Indication: RHEUMATOID ARTHRITIS
     Route: 048
  20. ZYLORIC [Concomitant]
     Route: 048
  21. CYTOTEC [Concomitant]
     Route: 048
  22. ADRENAL HORMONE PREPARATION [Concomitant]
     Indication: RHEUMATOID ARTHRITIS

REACTIONS (1)
  - OSTEONECROSIS [None]
